FAERS Safety Report 21890310 (Version 1)
Quarter: 2023Q1

REPORT INFORMATION
  Report Type: Spontaneous
  Country: BR (occurrence: BR)
  Receive Date: 20230120
  Receipt Date: 20230120
  Transmission Date: 20230418
  Serious: Yes (Other)
  Sender: FDA-Public Use
  Company Number: BR-PFIZER INC-PV202300012079

PATIENT
  Age: 62 Year
  Sex: Male
  Weight: 68 kg

DRUGS (3)
  1. MEROPENEM [Suspect]
     Active Substance: MEROPENEM
     Dosage: 1 G, 3X/DAY
     Route: 042
     Dates: start: 20220330, end: 20220424
  2. MEROPENEM [Suspect]
     Active Substance: MEROPENEM
     Dosage: 1 G, 3X/DAY
     Route: 042
     Dates: start: 20220330, end: 20220424
  3. TRANSAMIN [Suspect]
     Active Substance: TRANEXAMIC ACID
     Dosage: 250 MG, 3X/DAY
     Route: 042
     Dates: start: 20220409, end: 20220425

REACTIONS (28)
  - Pancytopenia [Recovered/Resolved]
  - Stevens-Johnson syndrome [Unknown]
  - Ocular hyperaemia [Recovered/Resolved]
  - Eye pruritus [Recovered/Resolved]
  - Eyelid oedema [Recovered/Resolved]
  - Wheezing [Recovered/Resolved]
  - Rash [Recovered/Resolved]
  - Hepatic enzyme increased [Recovered/Resolved]
  - Pruritus [Recovered/Resolved]
  - Dysuria [Recovered/Resolved]
  - Photophobia [Recovered/Resolved]
  - Face oedema [Unknown]
  - Periorbital oedema [Unknown]
  - Eosinophilia [Unknown]
  - Bronchospasm [Unknown]
  - Productive cough [Unknown]
  - Erythema [Recovered/Resolved]
  - Rash maculo-papular [Recovered/Resolved]
  - Keratitis [Unknown]
  - Lymphopenia [Unknown]
  - Ocular discomfort [Unknown]
  - Visual impairment [Unknown]
  - Dysuria [Unknown]
  - Amylase increased [Unknown]
  - Transaminases increased [Unknown]
  - Blood bilirubin increased [Unknown]
  - Drug eruption [Unknown]
  - Eye oedema [Unknown]

NARRATIVE: CASE EVENT DATE: 20220411
